FAERS Safety Report 4435078-2 (Version None)
Quarter: 2004Q3

REPORT INFORMATION
  Report Type: 
  Country: None (occurrence: None)
  Receive Date: 20040826
  Receipt Date: 20040826
  Transmission Date: 20050211
  Serious: Yes (Life-Threatening, Hospitalization)
  Sender: FDA-Public Use
  Company Number: None

PATIENT
  Age: 32 Year
  Sex: Female

DRUGS (1)
  1. ORTHO EVRA [Suspect]
     Indication: CONTRACEPTION
     Dosage: 6.0MG/.75MG  Q THREE  TRANSDERMAL
     Route: 062
     Dates: start: 20040101, end: 20040401

REACTIONS (1)
  - PULMONARY EMBOLISM [None]
